FAERS Safety Report 4733008-7 (Version None)
Quarter: 2005Q3

REPORT INFORMATION
  Report Type: 
  Country: None (occurrence: None)
  Receive Date: 20050801
  Receipt Date: 20050719
  Transmission Date: 20060218
  Serious: Yes (Other)
  Sender: FDA-Public Use
  Company Number: 2005061550

PATIENT
  Age: 13 Year
  Sex: Female

DRUGS (2)
  1. BEXTRA [Suspect]
     Indication: TONSILLITIS
     Dates: start: 20050310
  2. AZITHROMYCIN [Concomitant]

REACTIONS (3)
  - CARDIAC DISORDER [None]
  - CYANOSIS [None]
  - FATIGUE [None]
